FAERS Safety Report 6738466-4 (Version None)
Quarter: 2010Q2

REPORT INFORMATION
  Report Type: 
  Country: None (occurrence: None)
  Receive Date: 20100524
  Receipt Date: 20100510
  Transmission Date: 20101027
  Serious: Yes (Other)
  Sender: FDA-Public Use
  Company Number: PHHY2010US30798

PATIENT
  Sex: Female

DRUGS (17)
  1. RECLAST [Suspect]
     Indication: OSTEOPOROSIS
     Dosage: 5 MG, YEARLY
     Route: 042
     Dates: start: 20100414
  2. PREDNISONE [Concomitant]
  3. SYNTHROID [Concomitant]
     Indication: HYPOTHYROIDISM
     Dosage: DAILY
  4. COUMADIN [Concomitant]
     Indication: ATRIAL FIBRILLATION
  5. METOPROLOL [Concomitant]
     Dosage: 50 MG
  6. HYDROCHLOROTHIAZIDE [Concomitant]
  7. ASPIRIN [Concomitant]
     Dosage: 81 MG
  8. CALCIUM [Concomitant]
     Dosage: 1800 MG
  9. CULTURELLE [Concomitant]
  10. LOVAZA [Concomitant]
     Dosage: 1000 MG
  11. OMEPRAZOLE [Concomitant]
  12. LORAZEPAM [Concomitant]
  13. DARVOCET [Concomitant]
  14. VITAMIN D [Concomitant]
     Dosage: 2000 UNITS
  15. SIMVASTATIN [Concomitant]
  16. CLOBETASOL PROPIONATE [Concomitant]
     Indication: LICHEN SCLEROSUS
     Route: 061
  17. MULTI-VITAMINS [Concomitant]
     Dosage: DAILY

REACTIONS (3)
  - ABDOMINAL DISCOMFORT [None]
  - DIARRHOEA [None]
  - VOMITING [None]
